FAERS Safety Report 23446081 (Version 1)
Quarter: 2024Q1

REPORT INFORMATION
  Report Type: Spontaneous
  Country: US (occurrence: None)
  Receive Date: 20240126
  Receipt Date: 20240126
  Transmission Date: 20240410
  Serious: No
  Sender: FDA-Public Use
  Company Number: 2024A019604

PATIENT
  Sex: Male

DRUGS (2)
  1. FASENRA [Suspect]
     Active Substance: BENRALIZUMAB
     Dosage: ONCE EVERY 4 WEEKS FOR 3 TIMES
     Route: 058
  2. FASENRA [Suspect]
     Active Substance: BENRALIZUMAB
     Dosage: THEN WAS PRESCRIBED FASENRA 30MG ONCE EVERY 8 WEEKS
     Route: 058

REACTIONS (2)
  - Dysphonia [Unknown]
  - Dyspnoea [Unknown]
